FAERS Safety Report 5394992-4 (Version None)
Quarter: 2007Q3

REPORT INFORMATION
  Report Type: 
  Country: None (occurrence: None)
  Receive Date: 20070724
  Receipt Date: 20070717
  Transmission Date: 20080115
  Serious: Yes (Hospitalization, Other)
  Sender: FDA-Public Use
  Company Number: PHBS2007US12089

PATIENT
  Age: 50 Year
  Sex: Female
  Weight: 86 kg

DRUGS (6)
  1. HYDROCHLOROTHIAZIDE [Suspect]
     Indication: HYPERTENSION
  2. METOPROLOL SUCCINATE [Suspect]
     Indication: HYPERTENSION
     Dosage: 100 MG/DAY
  3. METOPROLOL SUCCINATE [Suspect]
     Dosage: 50 MG/DAY
  4. AMLODIPINE [Suspect]
     Indication: HYPERTENSION
     Dosage: 5 MG/DAY
  5. IRBESARTAN [Suspect]
     Indication: HYPERTENSION
     Dosage: 300 MG/DAY
  6. DEXAMETHASONE 0.5MG TAB [Concomitant]
     Dosage: 1 MG, UNK

REACTIONS (10)
  - ABDOMINAL PAIN [None]
  - ADRENAL ADENOMA [None]
  - ADRENALECTOMY [None]
  - ALDOSTERONE URINE INCREASED [None]
  - BLOOD ALDOSTERONE INCREASED [None]
  - BLOOD POTASSIUM DECREASED [None]
  - CATHETERISATION VENOUS [None]
  - HYPOKALAEMIA [None]
  - NUCLEAR MAGNETIC RESONANCE IMAGING ABNORMAL [None]
  - RENIN DECREASED [None]
